FAERS Safety Report 24918613 (Version 5)
Quarter: 2025Q2

REPORT INFORMATION
  Report Type: Spontaneous
  Country: US (occurrence: US)
  Receive Date: 20250203
  Receipt Date: 20250421
  Transmission Date: 20250717
  Serious: No
  Sender: SANOFI AVENTIS
  Company Number: US-SA-2025SA031768

PATIENT
  Age: 53 Year
  Sex: Female

DRUGS (1)
  1. DUPIXENT [Suspect]
     Active Substance: DUPILUMAB
     Indication: Chronic obstructive pulmonary disease
     Dosage: 300 MG, QOW
     Route: 058
     Dates: start: 202412

REACTIONS (10)
  - Illness [Unknown]
  - Amnesia [Unknown]
  - Skin mass [Unknown]
  - Injection site vesicles [Unknown]
  - Injection site swelling [Unknown]
  - Injection site pain [Unknown]
  - Device defective [Unknown]
  - Accidental exposure to product [Unknown]
  - Exposure via skin contact [Unknown]
  - Product preparation error [Unknown]

NARRATIVE: CASE EVENT DATE: 20250130
